FAERS Safety Report 12053887 (Version 1)
Quarter: 2016Q1

REPORT INFORMATION
  Report Type: Spontaneous
  Country: US (occurrence: US)
  Receive Date: 20160209
  Receipt Date: 20160209
  Transmission Date: 20160526
  Serious: No
  Sender: FDA-Public Use
  Company Number: US-SA-2015SA217386

PATIENT
  Age: 59 Year
  Sex: Female

DRUGS (3)
  1. ALIROCUMAB PREFILLED PEN [Concomitant]
     Active Substance: ALIROCUMAB
     Dates: start: 20151018, end: 20151018
  2. EZETIMIBE. [Concomitant]
     Active Substance: EZETIMIBE
  3. PRALUENT [Suspect]
     Active Substance: ALIROCUMAB
     Indication: ADJUVANT THERAPY
     Route: 065
     Dates: start: 20151018, end: 20151018

REACTIONS (4)
  - Asthenia [Recovered/Resolved]
  - Vomiting [Recovered/Resolved]
  - Dizziness [Recovered/Resolved]
  - Nausea [Recovered/Resolved]

NARRATIVE: CASE EVENT DATE: 201510
